FAERS Safety Report 5431221-7 (Version None)
Quarter: 2007Q3

REPORT INFORMATION
  Report Type: 
  Country: None (occurrence: None)
  Receive Date: 20070830
  Receipt Date: 20070824
  Transmission Date: 20080115
  Serious: Yes (Hospitalization)
  Sender: FDA-Public Use
  Company Number: JP-ELI_LILLY_AND_COMPANY-JP200707006411

PATIENT
  Age: 65 Year
  Sex: Female

DRUGS (3)
  1. RALOXIFENE HYDROCHLORIDE [Suspect]
     Indication: OSTEOPOROSIS POSTMENOPAUSAL
     Dosage: 60 MG, DAILY (1/D)
     Route: 048
     Dates: start: 20050314, end: 20070312
  2. ALFAROL [Concomitant]
     Indication: OSTEOPOROSIS POSTMENOPAUSAL
     Dosage: 0.75 UG, DAILY (1/D)
     Route: 048
     Dates: end: 20070312
  3. ASPARA-CA [Concomitant]
     Indication: OSTEOPOROSIS POSTMENOPAUSAL
     Dosage: 1.2 G, DAILY (1/D)
     Route: 048
     Dates: end: 20070312

REACTIONS (1)
  - GASTRIC CANCER [None]
